FAERS Safety Report 7965821-7 (Version None)
Quarter: 2011Q4

REPORT INFORMATION
  Report Type: 
  Country: None (occurrence: None)
  Receive Date: 20111208
  Receipt Date: 20111205
  Transmission Date: 20120403
  Serious: Yes (Other)
  Sender: FDA-Public Use
  Company Number: US-PFIZER INC-2011222650

PATIENT
  Sex: Female
  Weight: 81.633 kg

DRUGS (6)
  1. LYRICA [Suspect]
     Indication: FIBROMYALGIA
     Dosage: 300 MG, 2X/DAY
     Route: 048
     Dates: end: 20111101
  2. HYDROCODONE [Concomitant]
     Indication: FIBROMYALGIA
     Dosage: 7.5 MG, EVERY 4 HRS
     Route: 048
  3. FLEXERIL [Concomitant]
     Indication: FIBROMYALGIA
     Dosage: 10 MG, 3X/DAY
  4. PRAVASTATIN SODIUM [Concomitant]
     Indication: BLOOD CHOLESTEROL ABNORMAL
     Dosage: 10 MG, DAILY
  5. ULTRAM ER [Concomitant]
     Indication: FIBROMYALGIA
     Dosage: 300 MG, DAILY
  6. AMBIEN [Concomitant]
     Indication: SLEEP DISORDER
     Dosage: 10 MG, AS NEEDED

REACTIONS (2)
  - HEART RATE IRREGULAR [None]
  - DRUG DISPENSING ERROR [None]
